FAERS Safety Report 4727822-1 (Version None)
Quarter: 2005Q3

REPORT INFORMATION
  Report Type: 
  Country: None (occurrence: None)
  Receive Date: 20050728
  Receipt Date: 20041217
  Transmission Date: 20060218
  Serious: Yes (Other)
  Sender: FDA-Public Use
  Company Number: DE-MERCK-0412DEU00161

PATIENT
  Age: 66 Year
  Sex: Female

DRUGS (7)
  1. VIOXX [Suspect]
     Indication: POLYARTHRITIS
     Route: 048
     Dates: start: 19991216, end: 20040928
  2. VIOXX [Suspect]
     Indication: ANALGESIC THERAPY
     Route: 048
     Dates: start: 19991216, end: 20040928
  3. ASPIRIN [Concomitant]
     Route: 065
  4. HYDROCHLOROTHIAZIDE [Concomitant]
     Indication: HYPERTENSION
     Route: 048
     Dates: start: 20040322
  5. AMLODIPINE MESYLATE [Concomitant]
     Route: 065
  6. TRAMADOL HYDROCHLORIDE [Concomitant]
     Indication: ANALGESIC THERAPY
     Route: 048
     Dates: start: 20000314, end: 20041206
  7. ENALAPRIL MALEATE [Concomitant]
     Indication: HYPERTENSION
     Route: 048
     Dates: start: 20040322

REACTIONS (7)
  - BACK PAIN [None]
  - CEREBROVASCULAR ACCIDENT [None]
  - DIARRHOEA [None]
  - HYPERLIPIDAEMIA [None]
  - HYPERTENSION [None]
  - VASCULAR ENCEPHALOPATHY [None]
  - WRONG TECHNIQUE IN DRUG USAGE PROCESS [None]
